FAERS Safety Report 11790446 (Version 5)
Quarter: 2016Q3

REPORT INFORMATION
  Report Type: Report from Study
  Country: JP (occurrence: JP)
  Receive Date: 20151201
  Receipt Date: 20160912
  Transmission Date: 20161109
  Serious: Yes (Other)
  Sender: FDA-Public Use
  Company Number: JP-BRISTOL-MYERS SQUIBB COMPANY-BMS-2015-055975

PATIENT
  Age: 83 Year
  Sex: Female

DRUGS (34)
  1. NIVOLUMAB [Suspect]
     Active Substance: NIVOLUMAB
     Dosage: 2 MG/KG, UNK
     Route: 042
     Dates: start: 20150611, end: 20150611
  2. NIVOLUMAB [Suspect]
     Active Substance: NIVOLUMAB
     Indication: MALIGNANT MELANOMA
     Dosage: 1.8 MG/KG, UNK
     Route: 042
     Dates: start: 20150522, end: 20150522
  3. SULFAMETHOXAZOLE AND TRIMETHOPRIM [Suspect]
     Active Substance: SULFAMETHOXAZOLE\TRIMETHOPRIM
     Indication: PRODUCT USED FOR UNKNOWN INDICATION
     Route: 065
  4. MAGMITT [Suspect]
     Active Substance: MAGNESIUM OXIDE
     Indication: PRODUCT USED FOR UNKNOWN INDICATION
     Route: 065
  5. MEILAX [Suspect]
     Active Substance: ETHYL LOFLAZEPATE
     Indication: PRODUCT USED FOR UNKNOWN INDICATION
     Route: 065
  6. NIVOLUMAB [Suspect]
     Active Substance: NIVOLUMAB
     Dosage: 2 MG/KG, UNK
     Route: 042
     Dates: start: 20151023, end: 20151023
  7. NIVOLUMAB [Suspect]
     Active Substance: NIVOLUMAB
     Dosage: 2 MG/KG, UNK
     Route: 041
     Dates: start: 20160318, end: 20160318
  8. BONALON [Suspect]
     Active Substance: ALENDRONATE SODIUM
     Indication: PRODUCT USED FOR UNKNOWN INDICATION
     Route: 065
  9. TENELIA [Suspect]
     Active Substance: TENELIGLIPTIN
     Indication: PRODUCT USED FOR UNKNOWN INDICATION
     Route: 065
  10. NIVOLUMAB [Suspect]
     Active Substance: NIVOLUMAB
     Dosage: 2 MG/KG, UNK
     Route: 042
     Dates: start: 20150706, end: 20150706
  11. NIVOLUMAB [Suspect]
     Active Substance: NIVOLUMAB
     Dosage: 2 MG/KG, UNK
     Route: 042
     Dates: start: 20150821, end: 20150821
  12. NIVOLUMAB [Suspect]
     Active Substance: NIVOLUMAB
     Dosage: 2 MG/KG, UNK
     Route: 042
     Dates: start: 20151113, end: 20151113
  13. NIVOLUMAB [Suspect]
     Active Substance: NIVOLUMAB
     Dosage: 2 MG/KG, UNK
     Route: 042
     Dates: start: 20151204, end: 20151204
  14. NEXIUM [Suspect]
     Active Substance: ESOMEPRAZOLE MAGNESIUM
     Indication: PRODUCT USED FOR UNKNOWN INDICATION
     Route: 065
  15. LIPITOR [Suspect]
     Active Substance: ATORVASTATIN CALCIUM
     Indication: PRODUCT USED FOR UNKNOWN INDICATION
     Route: 065
  16. MUCODYNE [Suspect]
     Active Substance: CARBOCYSTEINE
     Indication: PRODUCT USED FOR UNKNOWN INDICATION
     Route: 065
  17. CALONAL [Suspect]
     Active Substance: ACETAMINOPHEN
     Indication: PRODUCT USED FOR UNKNOWN INDICATION
     Route: 065
  18. PURSENNID                          /00142207/ [Suspect]
     Active Substance: SENNOSIDES A AND B
     Indication: PRODUCT USED FOR UNKNOWN INDICATION
     Route: 065
  19. NIVOLUMAB [Suspect]
     Active Substance: NIVOLUMAB
     Dosage: 2 MG/KG, UNK
     Route: 042
     Dates: start: 20151002, end: 20151002
  20. NIVOLUMAB [Suspect]
     Active Substance: NIVOLUMAB
     Dosage: 2 MG/KG, UNK
     Route: 041
     Dates: start: 20160205, end: 20160205
  21. NIVOLUMAB [Suspect]
     Active Substance: NIVOLUMAB
     Dosage: 2 MG/KG, UNK
     Route: 041
     Dates: start: 20160226, end: 20160226
  22. PREDNISOLONE                       /00016202/ [Suspect]
     Active Substance: PREDNISOLONE
     Indication: PRODUCT USED FOR UNKNOWN INDICATION
     Dosage: 4 MG, QD
     Route: 065
  23. PREDNISOLONE                       /00016202/ [Suspect]
     Active Substance: PREDNISOLONE
     Dosage: 20 MG, QD
     Route: 065
     Dates: start: 20151113
  24. PREDNISOLONE                       /00016202/ [Suspect]
     Active Substance: PREDNISOLONE
     Dosage: 10 MG, QD
     Route: 065
     Dates: start: 20151221
  25. PREDNISOLONE                       /00016202/ [Suspect]
     Active Substance: PREDNISOLONE
     Dosage: 7.5 MG, QD
     Route: 065
     Dates: start: 20160119
  26. PREDNISOLONE                       /00016202/ [Suspect]
     Active Substance: PREDNISOLONE
     Dosage: 5 MG, QD
     Route: 065
     Dates: start: 20160209
  27. NIVOLUMAB [Suspect]
     Active Substance: NIVOLUMAB
     Dosage: 2 MG/KG, UNK
     Route: 042
     Dates: start: 20150729, end: 20150729
  28. PREDNISOLONE                       /00016202/ [Suspect]
     Active Substance: PREDNISOLONE
     Dosage: 15 MG, QD
     Route: 065
     Dates: start: 20151207
  29. ADALAT [Suspect]
     Active Substance: NIFEDIPINE
     Indication: PRODUCT USED FOR UNKNOWN INDICATION
     Route: 065
  30. NIVOLUMAB [Suspect]
     Active Substance: NIVOLUMAB
     Dosage: 2 MG/KG, UNK
     Route: 042
     Dates: start: 20150911, end: 20150911
  31. NIVOLUMAB [Suspect]
     Active Substance: NIVOLUMAB
     Dosage: 2 MG/KG, UNK
     Route: 042
     Dates: start: 20151225, end: 20151225
  32. NIVOLUMAB [Suspect]
     Active Substance: NIVOLUMAB
     Dosage: 2 MG/KG, UNK
     Route: 042
     Dates: start: 20160115, end: 20160115
  33. NIVOLUMAB [Suspect]
     Active Substance: NIVOLUMAB
     Dosage: 2 MG/KG, UNK
     Route: 041
     Dates: start: 20160408, end: 20160408
  34. THYRADIN [Suspect]
     Active Substance: LEVOTHYROXINE
     Indication: PRODUCT USED FOR UNKNOWN INDICATION
     Route: 065

REACTIONS (3)
  - Nephrotic syndrome [Recovered/Resolved with Sequelae]
  - Prescribed underdose [Unknown]
  - Blood corticotrophin decreased [Not Recovered/Not Resolved]

NARRATIVE: CASE EVENT DATE: 20150522
